FAERS Safety Report 9259234 (Version 1)
Quarter: 2013Q2

REPORT INFORMATION
  Report Type: Spontaneous
  Country: AU (occurrence: AU)
  Receive Date: 20130426
  Receipt Date: 20130426
  Transmission Date: 20140414
  Serious: Yes (Life-Threatening)
  Sender: FDA-Public Use
  Company Number: AU-ASTRAZENECA-2013SE28293

PATIENT
  Age: 22445 Day
  Sex: Female

DRUGS (4)
  1. NEXIUM [Suspect]
     Route: 048
     Dates: start: 20120918, end: 20121021
  2. MOTILIUM [Concomitant]
  3. PRAMIN [Concomitant]
  4. ZOFRAN [Concomitant]

REACTIONS (4)
  - Blood bicarbonate decreased [Not Recovered/Not Resolved]
  - Blood creatinine increased [Not Recovered/Not Resolved]
  - Tubulointerstitial nephritis [Not Recovered/Not Resolved]
  - Rash maculo-papular [Not Recovered/Not Resolved]
